FAERS Safety Report 4302414-7 (Version None)
Quarter: 2004Q1

REPORT INFORMATION
  Report Type: 
  Country: None (occurrence: None)
  Receive Date: 20040220
  Receipt Date: 20040129
  Transmission Date: 20041129
  Serious: No
  Sender: FDA-Public Use
  Company Number: F01200400180

PATIENT
  Age: 46 Year
  Sex: Female

DRUGS (3)
  1. (OXALIPLATIN) - SOLUTION - 225 MG [Suspect]
     Dosage: 225 MG Q3W; INTRAVENOUS NOS (2 HOURS - TIME TO ONSET: 3 WEEKS 1 DAY
     Route: 042
     Dates: start: 20030909, end: 20030909
  2. (CAPECITABINE) - TABLET - 1500 MG [Suspect]
     Dosage: 1500 MG TWICE A DAY; ORAL (2 WEEKS  - TIME TO ONSET: 3 WEEKS 1 DAY)
     Route: 048
     Dates: start: 20030909, end: 20030922
  3. (ERLOTINIB) - FORM: UNKNOWN - UNIT DOSE: UNKNOWN [Suspect]
     Dosage: 100 MG QD; ORAL (9 WEEKS - TIME TO ONSET: 9 WEEKS
     Route: 048
     Dates: start: 20030730, end: 20030930

REACTIONS (1)
  - HENOCH-SCHONLEIN PURPURA [None]
